FAERS Safety Report 12705186 (Version 1)
Quarter: 2016Q3

REPORT INFORMATION
  Report Type: Report from Study
  Country: CA (occurrence: CA)
  Receive Date: 20160831
  Receipt Date: 20160831
  Transmission Date: 20161109
  Serious: Yes (Other)
  Sender: FDA-Public Use
  Company Number: CA-BAXTER-2016BAX045798

PATIENT

DRUGS (7)
  1. PROCYTOX (CYCLOPHOSPHAMIDE) 2000MG/VIAL [Suspect]
     Active Substance: CYCLOPHOSPHAMIDE
     Indication: MEDULLOBLASTOMA
     Dosage: ON DAYS 1 AND 2 FOR 3 CYCLES
     Route: 042
  2. ETOPOSIDE. [Suspect]
     Active Substance: ETOPOSIDE
     Indication: MEDULLOBLASTOMA
     Dosage: ON DAYS 0, 1 AND 2 FOR 3 CYCLES
     Route: 042
  3. CARBOPLATIN. [Suspect]
     Active Substance: CARBOPLATIN
     Indication: MEDULLOBLASTOMA
     Dosage: ON DAYS 0 AND 1 (HIGH DOSE) FOR THREE CONSECUTIVE CYCLES
     Route: 042
  4. VINCRISTINE [Suspect]
     Active Substance: VINCRISTINE
     Indication: MEDULLOBLASTOMA
     Dosage: ON DAYS 0, 7 AND 14 FOR 3 CYCLES
     Route: 042
  5. THIOTEPA. [Suspect]
     Active Substance: THIOTEPA
     Indication: MEDULLOBLASTOMA
     Dosage: ON DAYS 0, 1 AND 2 FOR THREE CONSECUTIVE CYCLES
     Route: 042
  6. UROMITEXAN (MESNA INJECTION) 100MG/ML [Suspect]
     Active Substance: MESNA
     Indication: MEDULLOBLASTOMA
     Dosage: FOR 3 CYCLES
     Route: 065
  7. CISPLATINUM [Suspect]
     Active Substance: CISPLATIN
     Indication: MEDULLOBLASTOMA
     Dosage: ON DAY 0 FOR 3 CYCLES
     Route: 042

REACTIONS (1)
  - Hypoacusis [Unknown]
